FAERS Safety Report 21563245 (Version 1)
Quarter: 2022Q4

REPORT INFORMATION
  Report Type: Spontaneous
  Country: US (occurrence: None)
  Receive Date: 20221107
  Receipt Date: 20221107
  Transmission Date: 20230113
  Serious: Yes (Death)
  Sender: FDA-Public Use
  Company Number: None

PATIENT
  Age: 13 Year
  Sex: Female

DRUGS (1)
  1. SILDENAFIL CITRATE [Suspect]
     Active Substance: SILDENAFIL CITRATE
     Indication: Pulmonary hypertension
     Dosage: FREQUENCY : TWICE A DAY;?
     Route: 048
     Dates: start: 20210329

REACTIONS (5)
  - Chronic respiratory failure [None]
  - Congestive cardiomyopathy [None]
  - Tachycardia [None]
  - Morphoea [None]
  - Lung disorder [None]

NARRATIVE: CASE EVENT DATE: 20221016
